FAERS Safety Report 8201697-0 (Version None)
Quarter: 2012Q1

REPORT INFORMATION
  Report Type: 
  Country: None (occurrence: None)
  Receive Date: 20120312
  Receipt Date: 20120306
  Transmission Date: 20120608
  Serious: Yes (Death, Other)
  Sender: FDA-Public Use
  Company Number: US-PFIZER INC-2011099028

PATIENT
  Sex: Female

DRUGS (1)
  1. CHANTIX [Suspect]
     Indication: SMOKING CESSATION THERAPY
     Dosage: UNK
     Dates: start: 20090201

REACTIONS (8)
  - POST-TRAUMATIC STRESS DISORDER [None]
  - COMPLETED SUICIDE [None]
  - ANXIETY [None]
  - AGGRESSION [None]
  - ANGER [None]
  - INTENTIONAL OVERDOSE [None]
  - PARANOIA [None]
  - DEPRESSION [None]
